FAERS Safety Report 5429009-6 (Version None)
Quarter: 2007Q3

REPORT INFORMATION
  Report Type: 
  Country: None (occurrence: None)
  Receive Date: 20070827
  Receipt Date: 20070822
  Transmission Date: 20080115
  Serious: Yes (Life-Threatening, Hospitalization)
  Sender: FDA-Public Use
  Company Number: 2007SP016623

PATIENT
  Age: 78 Year
  Sex: Female
  Weight: 74.9 kg

DRUGS (5)
  1. TEMODAL [Suspect]
     Indication: GLIOBLASTOMA
     Dosage: 135 MG; QD; PO
     Route: 048
     Dates: start: 20070704, end: 20070814
  2. PHENYTOIN [Concomitant]
  3. DEXAMETHASONE 0.5MG TAB [Concomitant]
  4. DOMPERIDONE [Concomitant]
  5. CO-TRIMOXAZOLE [Concomitant]

REACTIONS (2)
  - FEBRILE NEUTROPENIA [None]
  - PHARYNGOLARYNGEAL PAIN [None]
